FAERS Safety Report 10485885 (Version 1)
Quarter: 2014Q4

REPORT INFORMATION
  Report Type: Spontaneous
  Country: ES (occurrence: ES)
  Receive Date: 20141001
  Receipt Date: 20141001
  Transmission Date: 20150528
  Serious: Yes (Other)
  Sender: FDA-Public Use
  Company Number: ES-ACCORD-026110

PATIENT
  Age: 52 Year
  Sex: Female
  Weight: 72 kg

DRUGS (4)
  1. IRINOTECAN HOSPIRA [Suspect]
     Active Substance: IRINOTECAN
     Indication: COLON CANCER
     Dosage: 20 MG/ML. 309 MG IN GLUCOSE 5% 500 ML, 90 MIN
     Route: 065
     Dates: start: 20140310
  2. AVASTIN [Suspect]
     Active Substance: BEVACIZUMAB
     Indication: BREAST CANCER
     Dosage: 360 MG IN NACL 0.9 %. 100 ML IN 60 MINUTES?STRENGTH: 25 MG/ML
     Route: 065
     Dates: start: 20140107
  3. CALCIUM FOLINATE [Suspect]
     Active Substance: LEUCOVORIN CALCIUM
     Indication: COLON CANCER
     Dosage: 344 MG IN GLUCOSE 5%, 500 ML, 90 MIN?STRENGTH: 10 MG/ML
     Route: 065
     Dates: start: 20140310
  4. FLUOROURACIL ACCORD [Suspect]
     Active Substance: FLUOROURACIL
     Indication: COLON CANCER
     Dosage: STRENGTH: 50 MG/ML. 4300 MG IN NACL 0.9 %, 100 ML IN 46 HR
     Route: 065
     Dates: start: 20131202

REACTIONS (5)
  - Musculoskeletal stiffness [Recovered/Resolved]
  - Muscular weakness [Recovered/Resolved]
  - Fall [Recovered/Resolved]
  - Asthenia [None]
  - Depressed level of consciousness [Recovered/Resolved]

NARRATIVE: CASE EVENT DATE: 20140825
